FAERS Safety Report 7081477-2 (Version None)
Quarter: 2010Q4

REPORT INFORMATION
  Report Type: 
  Country: None (occurrence: None)
  Receive Date: 20101103
  Receipt Date: 20101020
  Transmission Date: 20110411
  Serious: Yes (Other)
  Sender: FDA-Public Use
  Company Number: BR-GENENTECH-308655

PATIENT
  Sex: Female
  Weight: 50 kg

DRUGS (5)
  1. MABTHERA [Suspect]
     Indication: JUVENILE ARTHRITIS
     Dosage: UNK
     Route: 065
  2. ACTEMRA [Suspect]
     Indication: JUVENILE ARTHRITIS
     Dosage: UNK
     Route: 042
     Dates: start: 20091101, end: 20091201
  3. PREDNISONE [Concomitant]
     Indication: JUVENILE ARTHRITIS
     Dosage: 10 MG, UNK
     Route: 048
     Dates: start: 20040101
  4. ETANERCEPT [Concomitant]
     Indication: JUVENILE ARTHRITIS
     Dosage: 50 MG, UNK
     Route: 058
     Dates: start: 20090601, end: 20090801
  5. AZATHIOPRINE [Concomitant]
     Indication: JUVENILE ARTHRITIS
     Dosage: 50 MG, UNK
     Route: 048
     Dates: start: 20080801, end: 20091022

REACTIONS (6)
  - BODY TEMPERATURE DECREASED [None]
  - BRONCHOSPASM [None]
  - HYPERSENSITIVITY [None]
  - THERAPEUTIC RESPONSE DECREASED [None]
  - TREMOR [None]
  - URTICARIA [None]
